FAERS Safety Report 16649971 (Version 3)
Quarter: 2020Q4

REPORT INFORMATION
  Report Type: Spontaneous
  Country: PL (occurrence: PL)
  Receive Date: 20190731
  Receipt Date: 20201015
  Transmission Date: 20210113
  Serious: Yes (Death, Other)
  Sender: FDA-Public Use
  Company Number: PL-ROCHE-2366485

PATIENT
  Age: 61 Year
  Sex: Male

DRUGS (3)
  1. HEPARIN [Concomitant]
     Active Substance: HEPARIN SODIUM
     Indication: PERIPHERAL ISCHAEMIA
     Dosage: 1000J/H
     Dates: start: 20130306, end: 20130307
  2. HEPARIN [Concomitant]
     Active Substance: HEPARIN SODIUM
     Indication: ANEURYSM
     Dosage: 1000J/H
     Dates: start: 20130308, end: 20130308
  3. ACTILYSE [Suspect]
     Active Substance: ALTEPLASE
     Indication: PERIPHERAL ARTERY THROMBOSIS
     Route: 065
     Dates: start: 201303

REACTIONS (11)
  - Cardiac arrest [Fatal]
  - Off label use [Unknown]
  - General physical health deterioration [Fatal]
  - Pain in extremity [Unknown]
  - Haemorrhage [Fatal]
  - Circulatory collapse [Fatal]
  - Catheter site haemorrhage [Unknown]
  - Peripheral artery aneurysm rupture [Fatal]
  - Blood pressure increased [Unknown]
  - Respiratory failure [Fatal]
  - Intentional product use issue [Unknown]

NARRATIVE: CASE EVENT DATE: 20130306
